FAERS Safety Report 4996002-7 (Version None)
Quarter: 2006Q2

REPORT INFORMATION
  Report Type: 
  Country: None (occurrence: None)
  Receive Date: 20060508
  Receipt Date: 20060502
  Transmission Date: 20061013
  Serious: Yes (Hospitalization)
  Sender: FDA-Public Use
  Company Number: AU-MERCK-0605AUS00023

PATIENT
  Age: 85 Year
  Sex: Female

DRUGS (6)
  1. FOSAMAX [Suspect]
     Indication: OSTEOPOROSIS
     Route: 048
     Dates: start: 19990101, end: 20060401
  2. ASPIRIN [Concomitant]
     Indication: ANTICOAGULANT THERAPY
     Route: 065
     Dates: end: 20060401
  3. CALCIUM CARBONATE [Concomitant]
     Route: 065
     Dates: end: 20060401
  4. ASCORBIC ACID [Concomitant]
     Route: 065
     Dates: end: 20060401
  5. COD LIVER OIL [Concomitant]
     Route: 065
     Dates: end: 20060401
  6. MINERALS (UNSPECIFIED) AND VITAMINS (UNSPECIFIED) [Concomitant]
     Route: 065
     Dates: end: 20060401

REACTIONS (7)
  - FATIGUE [None]
  - INFECTION [None]
  - NAUSEA [None]
  - NERVOUSNESS [None]
  - RENAL IMPAIRMENT [None]
  - SKIN GRAFT [None]
  - SKIN ULCER [None]
